FAERS Safety Report 11099139 (Version 1)
Quarter: 2015Q2

REPORT INFORMATION
  Report Type: Spontaneous
  Country: FR (occurrence: None)
  Receive Date: 20150506
  Receipt Date: 20150506
  Transmission Date: 20150821
  Serious: Yes (Death, Hospitalization)
  Sender: FDA-Public Use
  Company Number: NSR_02060_2015

PATIENT
  Age: 31 Year
  Sex: Male

DRUGS (5)
  1. ACETAMINOPHEN (UNKNOWN) [Concomitant]
     Active Substance: ACETAMINOPHEN
  2. LIDOCAIN /00033401/ (UNKNOWN) [Concomitant]
  3. HYDROXYZINE [Concomitant]
     Active Substance: HYDROXYZINE\HYDROXYZINE HYDROCHLORIDE
  4. COCAINE (COCAINE) [Suspect]
     Active Substance: COCAINE
     Indication: PRODUCT USED FOR UNKNOWN INDICATION
     Dosage: DF (NOT THE PRESCRIBED AMOUNT)
  5. TRAMADOL (TRAMADOL) [Suspect]
     Active Substance: TRAMADOL
     Indication: PRODUCT USED FOR UNKNOWN INDICATION
     Dosage: DF (NOT THE PRESCRIBED AMOUNT)

REACTIONS (14)
  - Overdose [None]
  - Acidosis [None]
  - Generalised tonic-clonic seizure [None]
  - Chills [None]
  - Acute kidney injury [None]
  - Headache [None]
  - Cardio-respiratory arrest [None]
  - Hypokalaemia [None]
  - Haemodynamic instability [None]
  - Hyperhidrosis [None]
  - Nausea [None]
  - Blood pressure fluctuation [None]
  - Rhabdomyolysis [None]
  - Hyperthermia [None]
